FAERS Safety Report 6481159-1 (Version None)
Quarter: 2009Q4

REPORT INFORMATION
  Report Type: 
  Country: None (occurrence: None)
  Receive Date: 20091208
  Receipt Date: 20090414
  Transmission Date: 20100525
  Serious: No
  Sender: FDA-Public Use
  Company Number: US-AMGEN-KDL337985

PATIENT
  Sex: Female

DRUGS (2)
  1. ENBREL [Suspect]
     Indication: PSORIATIC ARTHROPATHY
     Dates: start: 20050103
  2. ENBREL [Suspect]
     Indication: PSORIASIS

REACTIONS (4)
  - COLITIS [None]
  - DIVERTICULITIS [None]
  - POLYP [None]
  - PSORIASIS [None]
